FAERS Safety Report 6503666-5 (Version None)
Quarter: 2009Q4

REPORT INFORMATION
  Report Type: 
  Country: None (occurrence: None)
  Receive Date: 20091217
  Receipt Date: 20091204
  Transmission Date: 20100525
  Serious: Yes (Other)
  Sender: FDA-Public Use
  Company Number: GB-BAUSCH-2008BL002999

PATIENT
  Sex: Female

DRUGS (5)
  1. TIMOLOL MALEATE [Suspect]
     Indication: DRUG USE FOR UNKNOWN INDICATION
     Route: 047
     Dates: start: 20070101
  2. TIMOLOL MALEATE [Suspect]
     Route: 047
     Dates: start: 20080325
  3. VISCOTEARS/TEARGEL [Suspect]
     Indication: DRY EYE
     Route: 047
     Dates: start: 20070830, end: 20080325
  4. DIAZEPAM [Concomitant]
     Indication: DRUG USE FOR UNKNOWN INDICATION
     Route: 048
  5. LIQUIFILM TEARS [Concomitant]
     Indication: DRUG USE FOR UNKNOWN INDICATION
     Route: 047
     Dates: start: 20070101

REACTIONS (3)
  - ANXIETY [None]
  - EYE MOVEMENT DISORDER [None]
  - VISUAL IMPAIRMENT [None]
